FAERS Safety Report 25279247 (Version 1)
Quarter: 2025Q2

REPORT INFORMATION
  Report Type: Spontaneous
  Country: FR (occurrence: FR)
  Receive Date: 20250507
  Receipt Date: 20250507
  Transmission Date: 20250717
  Serious: Yes (Hospitalization)
  Sender: MYLAN
  Company Number: None

PATIENT
  Age: 6 Year
  Sex: Female
  Weight: 21.5 kg

DRUGS (4)
  1. VALPROATE [Suspect]
     Active Substance: VALPROIC ACID
     Indication: Epilepsy
     Dosage: 25 MILLIGRAM/KILOGRAM, QD, TABLET
     Dates: start: 20250317, end: 20250409
  2. VALPROATE [Suspect]
     Active Substance: VALPROIC ACID
     Dosage: 25 MILLIGRAM/KILOGRAM, QD, TABLET
     Route: 065
     Dates: start: 20250317, end: 20250409
  3. VALPROATE [Suspect]
     Active Substance: VALPROIC ACID
     Dosage: 25 MILLIGRAM/KILOGRAM, QD, TABLET
     Route: 065
     Dates: start: 20250317, end: 20250409
  4. VALPROATE [Suspect]
     Active Substance: VALPROIC ACID
     Dosage: 25 MILLIGRAM/KILOGRAM, QD, TABLET
     Dates: start: 20250317, end: 20250409

REACTIONS (5)
  - Hepatic cytolysis [Recovering/Resolving]
  - Hepatic failure [Recovering/Resolving]
  - Abdominal pain [Recovering/Resolving]
  - Decreased appetite [Recovering/Resolving]
  - Vomiting [Recovering/Resolving]

NARRATIVE: CASE EVENT DATE: 20250317
